FAERS Safety Report 8249188 (Version 3)
Quarter: 2013Q4

REPORT INFORMATION
  Report Type: Report from Study
  Country: CA (occurrence: CA)
  Receive Date: 20111117
  Receipt Date: 20131125
  Transmission Date: 20140711
  Serious: Yes (Death, Other)
  Sender: FDA-Public Use
  Company Number: CA-PFIZER INC-2011279695

PATIENT
  Age: 68 Year
  Sex: Male

DRUGS (1)
  1. SUTENT [Suspect]
     Indication: SARCOMA
     Dosage: 37.5 MG, UNK
     Route: 048
     Dates: start: 20081212

REACTIONS (2)
  - Sepsis [Fatal]
  - Gastric perforation [Unknown]
